FAERS Safety Report 10974057 (Version 2)
Quarter: 2015Q2

REPORT INFORMATION
  Report Type: Spontaneous
  Country: CH (occurrence: CH)
  Receive Date: 20150401
  Receipt Date: 20150508
  Transmission Date: 20150821
  Serious: Yes (Other)
  Sender: FDA-Public Use
  Company Number: CH-AMGEN-CHESP2015028933

PATIENT
  Age: 84 Year
  Sex: Female
  Weight: 47 kg

DRUGS (4)
  1. PANTOZOL [Concomitant]
     Active Substance: PANTOPRAZOLE SODIUM
     Indication: ABDOMINAL DISCOMFORT
     Dosage: 40 UNK, QD
     Route: 048
  2. XGEVA [Suspect]
     Active Substance: DENOSUMAB
     Indication: METASTASES TO BONE
     Dosage: 120 UNK, Q4WK
     Route: 058
     Dates: start: 20140104, end: 201501
  3. CALCIMAGON                         /00751501/ [Concomitant]
     Active Substance: CALCIUM CARBONATE
     Indication: BONE DISORDER
     Dosage: 800 UNK, QD
     Route: 048
     Dates: start: 201401
  4. TAMOXIFEN [Concomitant]
     Active Substance: TAMOXIFEN
     Indication: BREAST CANCER
     Dosage: 20 UNK, QD
     Route: 048
     Dates: start: 201412

REACTIONS (4)
  - Pain in jaw [Unknown]
  - Tooth abscess [Recovered/Resolved]
  - Osteonecrosis of jaw [Recovering/Resolving]
  - Bone lesion [Recovered/Resolved]

NARRATIVE: CASE EVENT DATE: 201501
